FAERS Safety Report 21283095 (Version 2)
Quarter: 2023Q1

REPORT INFORMATION
  Report Type: Spontaneous
  Country: US (occurrence: US)
  Receive Date: 20220901
  Receipt Date: 20230207
  Transmission Date: 20230418
  Serious: Yes (Other)
  Sender: FDA-Public Use
  Company Number: US-PFIZER INC-202200778476

PATIENT
  Age: 60 Year
  Sex: Male
  Weight: 103.42 kg

DRUGS (3)
  1. BUTORPHANOL TARTRATE [Suspect]
     Active Substance: BUTORPHANOL TARTRATE
     Indication: Brain neoplasm
     Dosage: UNK, AS NEEDED (EVERY 46 HOURS, AS NEEDED)
  2. BUTORPHANOL TARTRATE [Suspect]
     Active Substance: BUTORPHANOL TARTRATE
     Indication: Migraine
     Dosage: UNK, AS NEEDED (2MG 2-4MG INJECTED ANYWHERE FROM SHOULDER, LEG, STOMACH EVERY 4 HOURS- 6 HOURS)
  3. BUTORPHANOL TARTRATE [Suspect]
     Active Substance: BUTORPHANOL TARTRATE
     Indication: Headache

REACTIONS (5)
  - Neoplasm progression [Unknown]
  - Headache [Unknown]
  - Migraine [Unknown]
  - Drug ineffective [Unknown]
  - Product supply issue [Unknown]
